FAERS Safety Report 21094290 (Version 7)
Quarter: 2022Q4

REPORT INFORMATION
  Report Type: Report from Study
  Country: CA (occurrence: CA)
  Receive Date: 20220718
  Receipt Date: 20221003
  Transmission Date: 20230112
  Serious: Yes (Hospitalization)
  Sender: FDA-Public Use
  Company Number: CA-JNJFOC-20220725198

PATIENT
  Age: 21 Year
  Sex: Female
  Weight: 51 kg

DRUGS (3)
  1. REMICADE [Suspect]
     Active Substance: INFLIXIMAB
     Indication: Colitis ulcerative
     Dosage: DOCTOR HAS ORDERED A RE-INDUCTION OF REMICADE
     Route: 042
     Dates: start: 20220414
  2. REMICADE [Suspect]
     Active Substance: INFLIXIMAB
     Dosage: RE-INDUCTION OF REMICADE 10MG/KG AT WEEK 2, 6 AND EVERY 8 WEEK
     Route: 042
     Dates: start: 2022, end: 20220922
  3. PREDNISONE [Concomitant]
     Active Substance: PREDNISONE
     Indication: Product used for unknown indication
     Dosage: RECOMMENDED TO INCREASE PREDNISONE
     Route: 065

REACTIONS (5)
  - Salmonellosis [Unknown]
  - Dehydration [Recovering/Resolving]
  - Colitis ulcerative [Not Recovered/Not Resolved]
  - Inappropriate schedule of product administration [Unknown]
  - Drug ineffective [Unknown]

NARRATIVE: CASE EVENT DATE: 20220101
